FAERS Safety Report 4367597-1 (Version None)
Quarter: 2004Q2

REPORT INFORMATION
  Report Type: 
  Country: None (occurrence: None)
  Receive Date: 20040526
  Receipt Date: 20040421
  Transmission Date: 20050107
  Serious: No
  Sender: FDA-Public Use
  Company Number: 2004US002103

PATIENT
  Age: 62 Year
  Sex: Female
  Weight: 67.1 kg

DRUGS (8)
  1. ALOXI [Suspect]
     Indication: PROPHYLAXIS OF NAUSEA AND VOMITING
     Dosage: 0.25 MG, SINGLE, INTRAVENOUS
     Route: 042
     Dates: start: 20040414, end: 20040414
  2. DEXAMETHASONE [Concomitant]
  3. TAXOL [Concomitant]
  4. CARBOPLATIN [Concomitant]
  5. FOSAMAX [Concomitant]
  6. ZANAFLEX [Concomitant]
  7. CALCIUM (CALCIUM) [Concomitant]
  8. PERCOCET [Concomitant]

REACTIONS (2)
  - CONDITION AGGRAVATED [None]
  - FIBROMYALGIA [None]
